FAERS Safety Report 20939183 (Version 1)
Quarter: 2022Q2

REPORT INFORMATION
  Report Type: Spontaneous
  Country: IN (occurrence: IN)
  Receive Date: 20220609
  Receipt Date: 20220609
  Transmission Date: 20220721
  Serious: Yes (Other)
  Sender: FDA-Public Use
  Company Number: IN-PFIZER INC-202200806163

PATIENT
  Age: 48 Year
  Sex: Female

DRUGS (2)
  1. PALBOCICLIB [Suspect]
     Active Substance: PALBOCICLIB
     Dosage: 125 MG, CYCLIC (1X/DAY, D1-D21 X 6 MONTHS)
     Route: 048
     Dates: start: 20210802
  2. LETROZOLE [Concomitant]
     Active Substance: LETROZOLE
     Dosage: 2.5 MG, 1X/DAY X 6 MONTHS

REACTIONS (4)
  - Osteosclerosis [Unknown]
  - White blood cell count abnormal [Unknown]
  - Blood creatinine abnormal [Unknown]
  - Full blood count abnormal [Unknown]
